FAERS Safety Report 7669719-3 (Version None)
Quarter: 2011Q3

REPORT INFORMATION
  Report Type: 
  Country: None (occurrence: None)
  Receive Date: 20110808
  Receipt Date: 20110804
  Transmission Date: 20111222
  Serious: Yes (Hospitalization)
  Sender: FDA-Public Use
  Company Number: ES-AMGEN-ESPCT2011039451

PATIENT
  Age: 47 Year
  Sex: Female

DRUGS (7)
  1. FLUOROURACIL [Concomitant]
     Dosage: 5996 MG, Q4WK
     Route: 042
     Dates: start: 20110622
  2. MITOMICINA C [Concomitant]
     Dosage: 14.49 MG, Q4WK
     Route: 042
     Dates: start: 20110622
  3. ACETAMINOPHEN [Concomitant]
     Dosage: 3 G, TID
     Route: 048
     Dates: start: 20110713
  4. PANITUMUMAB [Suspect]
     Indication: COLORECTAL CANCER
     Dosage: 275 MG, Q2WK
     Route: 042
     Dates: start: 20110622
  5. IBUPROFEN [Concomitant]
     Dosage: 600 MG, TID
     Route: 048
     Dates: start: 20110608, end: 20110713
  6. SYNALAR [Concomitant]
     Dosage: UNK UNK, TID
     Route: 061
     Dates: start: 20110727
  7. NALOXONE [Concomitant]
     Dosage: 10 MG, TID
     Route: 048
     Dates: start: 20110622

REACTIONS (4)
  - CONNECTIVE TISSUE DISORDER [None]
  - THROMBOCYTOPENIA [None]
  - NEUTROPENIA [None]
  - ENTERITIS [None]
